FAERS Safety Report 13797042 (Version 1)
Quarter: 2017Q3

REPORT INFORMATION
  Report Type: Report from Study
  Country: US (occurrence: US)
  Receive Date: 20170727
  Receipt Date: 20170727
  Transmission Date: 20171127
  Serious: No
  Sender: FDA-Public Use
  Company Number: PHEH2017US023191

PATIENT
  Sex: Male
  Weight: 58.2 kg

DRUGS (1)
  1. OMNITROPE [Suspect]
     Active Substance: SOMATROPIN
     Indication: BODY HEIGHT BELOW NORMAL
     Dosage: 2.5 MG, QD (7 DAYS A WEEK)
     Route: 058
     Dates: start: 201704

REACTIONS (2)
  - Headache [Recovered/Resolved]
  - Contusion [Recovered/Resolved]
